FAERS Safety Report 4752779-7 (Version None)
Quarter: 2005Q3

REPORT INFORMATION
  Report Type: 
  Country: None (occurrence: None)
  Receive Date: 20050823
  Receipt Date: 20050809
  Transmission Date: 20060218
  Serious: Yes (Other)
  Sender: FDA-Public Use
  Company Number: 194666

PATIENT
  Age: 39 Year
  Sex: Male
  Weight: 81.6475 kg

DRUGS (3)
  1. AVONEX [Suspect]
     Indication: MULTIPLE SCLEROSIS
     Dosage: 30 UG; QW; IM
     Route: 030
     Dates: start: 20030401, end: 20030901
  2. AVONEX [Suspect]
     Indication: MULTIPLE SCLEROSIS
     Dosage: 30 UG; QW; IM
     Route: 030
     Dates: start: 20030901
  3. MAVIK [Concomitant]

REACTIONS (7)
  - CHILLS [None]
  - INFLUENZA LIKE ILLNESS [None]
  - LYMPHOCYTE COUNT INCREASED [None]
  - LYMPHOCYTE MORPHOLOGY ABNORMAL [None]
  - NIGHT SWEATS [None]
  - PYREXIA [None]
  - SPLENOMEGALY [None]
